FAERS Safety Report 22006879 (Version 3)
Quarter: 2023Q2

REPORT INFORMATION
  Report Type: Report from Study
  Country: FR (occurrence: FR)
  Receive Date: 20230217
  Receipt Date: 20230411
  Transmission Date: 20230721
  Serious: Yes (Other)
  Sender: FDA-Public Use
  Company Number: FR-GILEAD-2023-0617195

PATIENT
  Sex: Female
  Weight: 82 kg

DRUGS (1)
  1. SACITUZUMAB GOVITECAN-HZIY [Suspect]
     Active Substance: SACITUZUMAB GOVITECAN-HZIY
     Indication: Triple negative breast cancer
     Dosage: 10 MG/KG, C1D1, D8
     Route: 042
     Dates: start: 20230126, end: 20230202

REACTIONS (2)
  - Intestinal ischaemia [Unknown]
  - Large intestine perforation [Unknown]
